FAERS Safety Report 5236493-X (Version None)
Quarter: 2007Q1

REPORT INFORMATION
  Report Type: 
  Country: None (occurrence: None)
  Receive Date: 20061208
  Receipt Date: 20060613
  Transmission Date: 20070707
  Serious: Yes (Other)
  Sender: FDA-Public Use
  Company Number: 2006UW12578

PATIENT
  Age: 63 Year
  Sex: Female
  Weight: 63.502 kg

DRUGS (4)
  1. CRESTOR [Suspect]
     Dosage: 5 MG PO
     Route: 048
     Dates: start: 20060501
  2. INDERAL [Concomitant]
  3. LEXAPRO [Concomitant]
  4. POTASSIUM ACETATE [Concomitant]

REACTIONS (1)
  - HYPERHIDROSIS [None]
